FAERS Safety Report 5682145-1 (Version None)
Quarter: 2008Q1

REPORT INFORMATION
  Report Type: 
  Country: None (occurrence: None)
  Receive Date: 20080327
  Receipt Date: 20071119
  Transmission Date: 20080703
  Serious: Yes (Hospitalization, Other)
  Sender: FDA-Public Use
  Company Number: US-RB-008575-07

PATIENT
  Sex: Female

DRUGS (4)
  1. SUBUTEX [Suspect]
     Route: 060
     Dates: start: 20071114
  2. SUBOXONE [Suspect]
     Route: 060
     Dates: start: 20071107, end: 20071108
  3. SUBOXONE [Suspect]
     Route: 060
     Dates: start: 20071109, end: 20071109
  4. BENZODIAZEPINE NOS [Suspect]
     Indication: DRUG USE FOR UNKNOWN INDICATION
     Dosage: DOSAGE UNKNOWN; PATIENT DENIES USE OF BENZODIAZEPINES; URINE DRUG SCREEN POSITIVE FOR BENZODIAZEPINE
     Route: 065

REACTIONS (3)
  - CONVULSION [None]
  - DRUG WITHDRAWAL SYNDROME [None]
  - LOSS OF CONSCIOUSNESS [None]
